FAERS Safety Report 18947943 (Version 3)
Quarter: 2021Q1

REPORT INFORMATION
  Report Type: Report from Study
  Country: US (occurrence: US)
  Receive Date: 20210226
  Receipt Date: 20210318
  Transmission Date: 20210420
  Serious: Yes (Death, Hospitalization, Other)
  Sender: FDA-Public Use
  Company Number: US-PFIZER INC-2021192931

PATIENT
  Age: 69 Year
  Sex: Male
  Weight: 136.1 kg

DRUGS (3)
  1. OPSUMIT [Concomitant]
     Active Substance: MACITENTAN
     Dosage: UNK
  2. SILDENAFIL CITRATE. [Suspect]
     Active Substance: SILDENAFIL CITRATE
     Dosage: UNK
  3. ORENITRAM [Suspect]
     Active Substance: TREPROSTINIL
     Indication: PULMONARY ARTERIAL HYPERTENSION
     Dosage: 0.125 MG, 2X/DAY (EVERY 12 HOURS)
     Route: 048
     Dates: start: 20201231

REACTIONS (8)
  - Death [Fatal]
  - Blood glucose abnormal [Unknown]
  - Tongue injury [Unknown]
  - Lethargy [Unknown]
  - Internal haemorrhage [Unknown]
  - Gait inability [Unknown]
  - Epistaxis [Unknown]
  - Periorbital swelling [Unknown]

NARRATIVE: CASE EVENT DATE: 20210116
